FAERS Safety Report 7150131-0 (Version None)
Quarter: 2010Q4

REPORT INFORMATION
  Report Type: 
  Country: None (occurrence: None)
  Receive Date: 20101210
  Receipt Date: 20101129
  Transmission Date: 20110411
  Serious: Yes (Other)
  Sender: FDA-Public Use
  Company Number: US-TYCO HEALTHCARE/MALLINCKRODT-T201002198

PATIENT
  Sex: Female

DRUGS (4)
  1. OPTIRAY 350 [Suspect]
     Indication: UROGRAM
     Dosage: 45 ML, SINGLE
     Route: 042
     Dates: start: 20101029, end: 20101029
  2. OPTIRAY 350 [Suspect]
     Dosage: 100 ML, SINGLE
     Route: 042
     Dates: start: 20101029, end: 20101029
  3. MEDROL [Concomitant]
     Indication: PREMEDICATION
  4. VISTARIL [Concomitant]
     Indication: PREMEDICATION

REACTIONS (3)
  - PRURITUS [None]
  - RASH [None]
  - THROAT TIGHTNESS [None]
